FAERS Safety Report 16877227 (Version 1)
Quarter: 2019Q4

REPORT INFORMATION
  Report Type: Report from Study
  Country: US (occurrence: US)
  Receive Date: 20191002
  Receipt Date: 20191002
  Transmission Date: 20200122
  Serious: Yes (Hospitalization)
  Sender: FDA-Public Use
  Company Number: US-BAYER-2019-176924

PATIENT
  Age: 70 Year
  Sex: Female

DRUGS (1)
  1. COPANLISIB. [Suspect]
     Active Substance: COPANLISIB
     Dosage: 60 MG
     Route: 042
     Dates: start: 20181119

REACTIONS (7)
  - Dehydration [None]
  - Vomiting [None]
  - Decreased appetite [None]
  - Hypophosphataemia [None]
  - Hyperglycaemia [Not Recovered/Not Resolved]
  - Syncope [None]
  - Acute kidney injury [None]

NARRATIVE: CASE EVENT DATE: 20181130
